FAERS Safety Report 5668900-2 (Version None)
Quarter: 2008Q1

REPORT INFORMATION
  Report Type: 
  Country: None (occurrence: None)
  Receive Date: 20080317
  Receipt Date: 20080307
  Transmission Date: 20080703
  Serious: Yes (Hospitalization)
  Sender: FDA-Public Use
  Company Number: ES-WYE-H03064708

PATIENT
  Sex: Male

DRUGS (3)
  1. SIROLIMUS [Suspect]
     Indication: RENAL TRANSPLANT
     Route: 048
     Dates: start: 20071213
  2. METHYLPREDNISOLONE [Concomitant]
     Dosage: UNSPECIFIED
     Dates: start: 20071213, end: 20071216
  3. THYMOGLOBULIN [Concomitant]
     Indication: RENAL TRANSPLANT
     Route: 042
     Dates: start: 20071213, end: 20071213

REACTIONS (3)
  - ESCHERICHIA INFECTION [None]
  - PYELONEPHRITIS [None]
  - URINARY FISTULA [None]
